FAERS Safety Report 18045078 (Version 2)
Quarter: 2020Q3

REPORT INFORMATION
  Report Type: Spontaneous
  Country: US (occurrence: US)
  Receive Date: 20200720
  Receipt Date: 20200810
  Transmission Date: 20201103
  Serious: Yes (Other)
  Sender: FDA-Public Use
  Company Number: US-009507513-2007USA006342

PATIENT
  Age: 19 Year
  Sex: Female
  Weight: 48.53 kg

DRUGS (3)
  1. ADDERALL [Concomitant]
     Active Substance: AMPHETAMINE ASPARTATE\AMPHETAMINE SULFATE\DEXTROAMPHETAMINE SACCHARATE\DEXTROAMPHETAMINE SULFATE
     Dosage: UNK
     Route: 048
  2. NEXPLANON [Suspect]
     Active Substance: ETONOGESTREL
     Indication: CONTRACEPTION
     Dosage: 1 IMPLANT (68MG), FREQUENCY REPORTED AS ONE TIME
     Route: 059
     Dates: start: 20180718, end: 20200724
  3. NEXPLANON [Suspect]
     Active Substance: ETONOGESTREL
     Indication: CONTRACEPTION
     Dosage: 1 IMPLANT
     Route: 059
     Dates: start: 20200724

REACTIONS (7)
  - Menorrhagia [Unknown]
  - Streptococcal urinary tract infection [Unknown]
  - Polymenorrhoea [Unknown]
  - Premenstrual syndrome [Unknown]
  - Fungal infection [Unknown]
  - Ovarian cyst [Unknown]
  - Dysmenorrhoea [Unknown]

NARRATIVE: CASE EVENT DATE: 20200525
